FAERS Safety Report 8420744-4 (Version None)
Quarter: 2012Q2

REPORT INFORMATION
  Report Type: 
  Country: None (occurrence: None)
  Receive Date: 20120608
  Receipt Date: 20120606
  Transmission Date: 20120825
  Serious: No
  Sender: FDA-Public Use
  Company Number: US-PFIZER INC-2012137049

PATIENT
  Sex: Female
  Weight: 88.435 kg

DRUGS (1)
  1. LYRICA [Suspect]
     Indication: FIBROMYALGIA
     Dosage: 50 MG, ONCE
     Route: 048
     Dates: start: 20120602, end: 20120603

REACTIONS (3)
  - HYPOAESTHESIA [None]
  - ASTHENIA [None]
  - SOMNOLENCE [None]
